FAERS Safety Report 7987619-6 (Version None)
Quarter: 2011Q4

REPORT INFORMATION
  Report Type: 
  Country: None (occurrence: None)
  Receive Date: 20111216
  Receipt Date: 20100826
  Transmission Date: 20120403
  Serious: No
  Sender: FDA-Public Use
  Company Number: US-BRISTOL-MYERS SQUIBB COMPANY-15150436

PATIENT
  Age: 50 Year
  Sex: Female
  Weight: 68 kg

DRUGS (9)
  1. CLONAZEPAM [Concomitant]
  2. VICODIN [Concomitant]
  3. ABILIFY [Suspect]
  4. DEPAKOTE [Concomitant]
  5. LYRICA [Concomitant]
  6. WELLBUTRIN [Concomitant]
  7. ATIVAN [Concomitant]
  8. COGENTIN [Concomitant]
  9. CYMBALTA [Concomitant]

REACTIONS (1)
  - TARDIVE DYSKINESIA [None]
